FAERS Safety Report 26153721 (Version 1)
Quarter: 2025Q4

REPORT INFORMATION
  Report Type: Spontaneous
  Country: CN (occurrence: CN)
  Receive Date: 20251214
  Receipt Date: 20251214
  Transmission Date: 20260118
  Serious: Yes (Hospitalization)
  Sender: DIZAL (JIANGSU) PHARMACEUTICAL CO., LTD.
  Company Number: CN-Dizal (Jiangsu) Pharmaceutical Co., Ltd.-2190534

PATIENT
  Sex: Male

DRUGS (1)
  1. SUNVOZERTINIB [Suspect]
     Active Substance: SUNVOZERTINIB
     Indication: Non-small cell lung cancer
     Route: 061

REACTIONS (2)
  - Gastric perforation [Recovered/Resolved]
  - Hypersensitivity [Unknown]
